FAERS Safety Report 5020364-8 (Version None)
Quarter: 2006Q2

REPORT INFORMATION
  Report Type: 
  Country: None (occurrence: None)
  Receive Date: 20060602
  Receipt Date: 20060519
  Transmission Date: 20061013
  Serious: Yes (Other)
  Sender: FDA-Public Use
  Company Number: 2006RR-02379

PATIENT
  Age: 68 Year
  Sex: Male
  Weight: 102 kg

DRUGS (7)
  1. FLUOXETINE [Suspect]
     Indication: DEPRESSION
     Dosage: QD, ORAL
     Route: 048
     Dates: start: 20060427, end: 20060501
  2. ACETAMINOPHEN W/ CODEINE [Concomitant]
  3. CARBAMAZEPINE [Concomitant]
  4. SENNA [Concomitant]
  5. OLMESARTAN MEDOXOMIL [Concomitant]
  6. BENDROFLUAZIDE [Concomitant]
  7. AMITRIPTYLINE HCL [Concomitant]

REACTIONS (1)
  - HEPATITIS ACUTE [None]
